FAERS Safety Report 17828371 (Version 1)
Quarter: 2020Q2

REPORT INFORMATION
  Report Type: Spontaneous
  Country: US (occurrence: US)
  Receive Date: 20200527
  Receipt Date: 20200527
  Transmission Date: 20200714
  Serious: Yes (Other)
  Sender: FDA-Public Use
  Company Number: US-MYLANLABS-2020M1051040

PATIENT
  Sex: Female

DRUGS (2)
  1. ASPIRIN                            /00002701/ [Concomitant]
     Active Substance: ASPIRIN
     Dosage: UNK
  2. NITROGLYCERIN TRANSDERMAL DELIVERY SYSTEM [Suspect]
     Active Substance: NITROGLYCERIN
     Indication: MYOCARDIAL INFARCTION
     Dosage: 2 DOSAGE FORM, QD (2 PATCHES A DAY)
     Route: 062

REACTIONS (9)
  - Product quality issue [Recovered/Resolved]
  - Burns third degree [Recovered/Resolved]
  - Application site pain [Recovered/Resolved]
  - Product substitution issue [Recovered/Resolved]
  - Application site scab [Recovered/Resolved]
  - Administration site scar [Recovered/Resolved]
  - Sticky skin [Recovered/Resolved]
  - Off label use [Recovered/Resolved]
  - Product dispensing error [Recovered/Resolved]
